FAERS Safety Report 9186622 (Version 1)
Quarter: 2013Q1

REPORT INFORMATION
  Report Type: Spontaneous
  Country: US (occurrence: US)
  Receive Date: 20130325
  Receipt Date: 20130325
  Transmission Date: 20140127
  Serious: No
  Sender: FDA-Public Use
  Company Number: US-PFIZER INC-2013092885

PATIENT
  Age: 43 Year
  Sex: 0
  Weight: 143 kg

DRUGS (11)
  1. SUTENT [Suspect]
     Dosage: 25 MG, 1X/DAY
     Route: 048
     Dates: start: 20121114
  2. COZAAR [Concomitant]
  3. ZOFRAN [Concomitant]
     Dosage: UNK
  4. PHENERGAN [Concomitant]
     Dosage: UNK
  5. REGLAN [Concomitant]
     Dosage: UNK
  6. PREDNISONE [Concomitant]
     Dosage: UNK
  7. MORPHINE [Concomitant]
     Dosage: 60 MG, 2X/DAY
  8. ATIVAN [Concomitant]
     Dosage: UNK
  9. PRILOSEC [Concomitant]
     Dosage: UNK
  10. LASIX [Concomitant]
     Dosage: UNK
  11. COLACE [Concomitant]
     Dosage: UNK

REACTIONS (1)
  - Hypertension [Unknown]
